APPROVED DRUG PRODUCT: DICLOFENAC POTASSIUM
Active Ingredient: DICLOFENAC POTASSIUM
Strength: 25MG
Dosage Form/Route: CAPSULE;ORAL
Application: A204648 | Product #001 | TE Code: AB
Applicant: BIONPHARMA INC
Approved: Feb 23, 2016 | RLD: No | RS: No | Type: RX